FAERS Safety Report 5122789-9 (Version None)
Quarter: 2006Q4

REPORT INFORMATION
  Report Type: 
  Country: None (occurrence: None)
  Receive Date: 20061005
  Receipt Date: 20061005
  Transmission Date: 20070319
  Serious: Yes (Life-Threatening, Hospitalization)
  Sender: FDA-Public Use
  Company Number: None

PATIENT
  Age: 67 Year
  Sex: Female
  Weight: 81.6475 kg

DRUGS (1)
  1. DISALCID [Suspect]
     Indication: OSTEOARTHRITIS
     Dates: start: 20060420, end: 20060507

REACTIONS (6)
  - BLOOD URINE [None]
  - DRUG HYPERSENSITIVITY [None]
  - HAEMOGLOBIN DECREASED [None]
  - HAEMOLYTIC ANAEMIA [None]
  - INFECTION MASKED [None]
  - URINARY TRACT INFECTION [None]
